FAERS Safety Report 9686292 (Version 2)
Quarter: 2014Q3

REPORT INFORMATION
  Report Type: Spontaneous
  Country: US (occurrence: US)
  Receive Date: 20131113
  Receipt Date: 20140905
  Transmission Date: 20150326
  Serious: Yes (Other)
  Sender: FDA-Public Use
  Company Number: PHEH2013US023327

PATIENT
  Sex: Female

DRUGS (3)
  1. VALTURNA [Suspect]
     Active Substance: ALISKIREN HEMIFUMARATE\VALSARTAN
     Dosage: 1 DF (300/320 MG), QD
     Dates: start: 20100211, end: 20120328
  2. METOPROLOL [Concomitant]
     Active Substance: METOPROLOL
     Dosage: 100 MG, QD
     Route: 048
  3. METFORMIN [Concomitant]
     Active Substance: METFORMIN HYDROCHLORIDE
     Dosage: 500 MG, BID
     Route: 048

REACTIONS (40)
  - Coronary artery disease [Unknown]
  - Hypertension [Unknown]
  - Hypotension [Unknown]
  - Atrial fibrillation [Unknown]
  - Neuropathy peripheral [Unknown]
  - Pain [Unknown]
  - Cough [Unknown]
  - Nasopharyngitis [Unknown]
  - Rhinorrhoea [Unknown]
  - Feeling abnormal [Unknown]
  - Renal cyst [Unknown]
  - Dissociation [Unknown]
  - Irritable bowel syndrome [Unknown]
  - Renal impairment [Unknown]
  - Renal failure chronic [Unknown]
  - Blood potassium increased [Unknown]
  - Injury [Unknown]
  - Migraine [Unknown]
  - Mental status changes [Unknown]
  - Sensory disturbance [Unknown]
  - Diabetes mellitus [Unknown]
  - Osteoarthritis [Unknown]
  - Vision blurred [Unknown]
  - Nausea [Unknown]
  - Vertebral foraminal stenosis [Unknown]
  - Cerebral calcification [Unknown]
  - Influenza like illness [Unknown]
  - Dizziness [Unknown]
  - Spinal osteoarthritis [Unknown]
  - Anhedonia [Unknown]
  - Nasal congestion [Unknown]
  - Hyperlipidaemia [Unknown]
  - Dyspnoea exertional [Unknown]
  - Confusional state [Unknown]
  - Central nervous system lymphoma [Unknown]
  - Gastrooesophageal reflux disease [Unknown]
  - Disturbance in attention [Unknown]
  - Cerebrovascular accident [Unknown]
  - Urinary incontinence [Unknown]
  - Dysarthria [Unknown]

NARRATIVE: CASE EVENT DATE: 2011
